FAERS Safety Report 8098787 (Version 13)
Quarter: 2014Q2

REPORT INFORMATION
  Report Type: Report from Study
  Country: GB (occurrence: GB)
  Receive Date: 20110819
  Receipt Date: 20140409
  Transmission Date: 20141212
  Serious: Yes (Hospitalization)
  Sender: FDA-Public Use
  Company Number: GB-ROCHE-788414

PATIENT
  Age: 44 Year
  Sex: Female
  Weight: 93 kg

DRUGS (20)
  1. TRASTUZUMAB [Suspect]
     Indication: HER-2 POSITIVE BREAST CANCER
     Dosage: DOSE HELD.
     Route: 042
  2. TRASTUZUMAB [Suspect]
     Dosage: LAST DOSE PRIOR TO SAE: 29 JULY 2011, LAST DOSE 546 MG
     Route: 042
  3. DOCETAXEL [Suspect]
     Indication: HER-2 POSITIVE BREAST CANCER
     Dosage: DOSE DECREASED, DATE OF LAST DOSE PRIOR TO SAE: 11/NOV/2011
     Route: 042
  4. DOCETAXEL [Suspect]
     Dosage: DOSE DECREASED,LAST DOSE ON 29 JULY 2011, LAST DOSE TAKEN 75 MG
     Route: 042
     Dates: start: 20110729, end: 20111111
  5. PARACETAMOL [Concomitant]
     Indication: PAIN
     Route: 065
     Dates: end: 20120920
  6. DICLOFENAC [Concomitant]
     Indication: PAIN
     Route: 065
     Dates: end: 20110805
  7. TRAMADOL [Concomitant]
     Indication: PAIN
  8. AMITRIPTYLINE HYDROCHLORIDE [Concomitant]
     Indication: PAIN
  9. OMEPRAZOLE [Concomitant]
     Indication: GASTROOESOPHAGEAL REFLUX DISEASE
  10. ZOPICLONE [Concomitant]
  11. ONDANSETRON [Concomitant]
     Route: 065
     Dates: start: 20110701, end: 20111111
  12. DEXAMETHASONE [Concomitant]
     Route: 065
     Dates: start: 20110701, end: 20111111
  13. DOMPERIDONE [Concomitant]
     Route: 065
     Dates: start: 20110701
  14. ZOLEDRONIC ACID [Concomitant]
     Indication: BONE PAIN
     Route: 065
     Dates: start: 20110701
  15. ADCAL (UNITED KINGDOM) [Concomitant]
     Route: 065
     Dates: start: 20110701
  16. HYDROCORTISONE [Concomitant]
     Route: 065
     Dates: start: 20110701, end: 20111111
  17. CHLORPHENIRAMINE [Concomitant]
     Route: 065
     Dates: start: 20110701, end: 20111111
  18. CITALOPRAM [Concomitant]
     Indication: DEPRESSION
     Route: 065
     Dates: start: 201203
  19. LEVOMEPROMAZINE [Concomitant]
     Indication: NAUSEA
     Route: 058
     Dates: start: 201206
  20. DIAMORPHINE [Concomitant]
     Indication: PAIN
     Route: 065
     Dates: start: 201206

REACTIONS (5)
  - Neutropenic sepsis [Recovered/Resolved]
  - Diarrhoea [Recovered/Resolved]
  - Neutropenic sepsis [Recovered/Resolved]
  - Diarrhoea [Recovered/Resolved]
  - Neutropenia [Recovered/Resolved]
